FAERS Safety Report 25933636 (Version 2)
Quarter: 2025Q4

REPORT INFORMATION
  Report Type: Report from Study
  Country: KR (occurrence: KR)
  Receive Date: 20251017
  Receipt Date: 20251117
  Transmission Date: 20260117
  Serious: Yes (Death, Other)
  Sender: ROCHE
  Company Number: KR-ROCHE-10000411680

PATIENT

DRUGS (3)
  1. ALECTINIB [Suspect]
     Active Substance: ALECTINIB
     Indication: Non-small cell lung cancer
     Route: 065
  2. BRIGATINIB [Suspect]
     Active Substance: BRIGATINIB
     Indication: Non-small cell lung cancer
     Route: 065
  3. BRIGATINIB [Suspect]
     Active Substance: BRIGATINIB
     Route: 065

REACTIONS (7)
  - Liver function test increased [Unknown]
  - Pneumonitis [Unknown]
  - Rash [Unknown]
  - Acute kidney injury [Unknown]
  - Seizure [Unknown]
  - Pleural effusion [Unknown]
  - Sudden death [Fatal]
